FAERS Safety Report 9828111 (Version 1)
Quarter: 2014Q1

REPORT INFORMATION
  Report Type: Spontaneous
  Country: US (occurrence: US)
  Receive Date: 20140117
  Receipt Date: 20140117
  Transmission Date: 20141002
  Serious: No
  Sender: FDA-Public Use
  Company Number: US-GILEAD-2010-0033116

PATIENT
  Sex: Female

DRUGS (5)
  1. ATRIPLA [Suspect]
     Indication: HIV INFECTION
  2. REYATAZ [Concomitant]
  3. SUSTIVA [Concomitant]
  4. ISENTRESS [Concomitant]
  5. NORVIR [Concomitant]

REACTIONS (3)
  - Blood pressure decreased [Unknown]
  - Blood lactic acid increased [Unknown]
  - Dyspnoea [Unknown]
